FAERS Safety Report 23369357 (Version 1)
Quarter: 2024Q1

REPORT INFORMATION
  Report Type: Spontaneous
  Country: US (occurrence: US)
  Receive Date: 20240105
  Receipt Date: 20240105
  Transmission Date: 20240409
  Serious: No
  Sender: FDA-Public Use
  Company Number: US-BRISTOL-MYERS SQUIBB COMPANY-2024-002037

PATIENT
  Age: 77 Year
  Sex: Male

DRUGS (1)
  1. LENALIDOMIDE [Suspect]
     Active Substance: LENALIDOMIDE
     Indication: Bronchitis
     Dosage: FREQUENCY: 1 CAPSULE EVERY DAY FOR 14 DAYS THEN 4 WEEKS OFF
     Route: 048

REACTIONS (1)
  - Off label use [Unknown]
